FAERS Safety Report 7516919-9 (Version None)
Quarter: 2011Q2

REPORT INFORMATION
  Report Type: 
  Country: None (occurrence: None)
  Receive Date: 20110601
  Receipt Date: 20110517
  Transmission Date: 20111010
  Serious: Yes (Hospitalization, Other)
  Sender: FDA-Public Use
  Company Number: JP-TYCO HEALTHCARE/MALLINCKRODT-T201101117

PATIENT
  Sex: Female
  Weight: 56.5 kg

DRUGS (20)
  1. SELTOUCH [Concomitant]
     Dosage: 1 PIECE AS NEEDED
  2. PURSENNID                          /01627401/ [Concomitant]
     Dosage: 24 MG, PRN
     Dates: start: 20110423
  3. HEPARIN [Concomitant]
     Dosage: A TIME/DAY, OPTIMUM DOSE
     Dates: start: 20110421, end: 20110512
  4. VENA                               /00000402/ [Concomitant]
     Dosage: 50 MG, QD, FOR 3 WEEKS, CESSATION FOR TWO WEEKS
  5. ISOTONIC SODIUM CHLORIDE [Concomitant]
     Dosage: , FOR 3 WEEKS, CESSATION FOR TWO WEEKS50 ML, TID
  6. OXYCODONE HCL [Concomitant]
     Dosage: 5 MG, PRN
  7. LIVOSTIN                           /01196302/ [Concomitant]
     Dosage: FOUR TIMES/DAY, OPTIMUM DOSE
  8. GASTER                             /00706001/ [Concomitant]
     Dosage: 20 MG, QD,FOR 3 WEEKS, CESSATION FOR TWO WEEKS
  9. PACLITAXEL [Concomitant]
     Dosage: 120 MG, QD, FOR 3 WEEKS, CESSATION FOR TWO WEEKS
  10. MAGNESIUM SULFATE [Concomitant]
     Dosage: 750 MG, QD
     Dates: start: 20110421
  11. LENDORMIN [Concomitant]
     Dosage: 0.375 MG, QD
  12. ODOMEL [Concomitant]
     Dosage: FOUR TIMES /DAY, OPTIMUM DOSE
  13. DEPAS [Concomitant]
     Dosage: 0.5 MG, QD
  14. FERRUM                             /00023505/ [Concomitant]
     Dosage: 100 MG, QD
  15. ISOTONIC SODIUM CHLORIDE [Concomitant]
     Dosage: 20 ML, QD, FOR 3 WEEKS, CESSATION FOR TWO WEEKS
  16. LEVOFLOXACIN [Concomitant]
     Dosage: FOUR TIMES/DAY, OPTIMUM DOSE
  17. METHADONE HCL [Suspect]
     Indication: CANCER PAIN
     Dosage: 5 MG
     Route: 048
     Dates: start: 20110421, end: 20110511
  18. DEXART [Concomitant]
     Dosage: 6.6 MG, QD, FOR 3 WEEKS, CESSATION FOR TWO WEEKS
  19. GLUCOSE [Concomitant]
     Dosage: 250 ML, QD, FOR 3 WEEKS, CESSATION FOR TWO WEEKS
  20. NEW LECICARBON [Concomitant]

REACTIONS (6)
  - ABDOMINAL DISCOMFORT [None]
  - DELIRIUM [None]
  - NAUSEA [None]
  - GAIT DISTURBANCE [None]
  - MALAISE [None]
  - VOMITING [None]
